FAERS Safety Report 5480907-7 (Version None)
Quarter: 2007Q4

REPORT INFORMATION
  Report Type: 
  Country: None (occurrence: None)
  Receive Date: 20071009
  Receipt Date: 20071001
  Transmission Date: 20080405
  Serious: Yes (Other)
  Sender: FDA-Public Use
  Company Number: GB-ABBOTT-07P-167-0419258-00

PATIENT
  Sex: Male

DRUGS (1)
  1. KLARICID IV [Suspect]
     Indication: DRUG USE FOR UNKNOWN INDICATION
     Route: 042

REACTIONS (4)
  - EXTRAVASATION [None]
  - LOCAL SWELLING [None]
  - PAIN [None]
  - SKIN IRRITATION [None]
